FAERS Safety Report 6229818-X (Version None)
Quarter: 2009Q2

REPORT INFORMATION
  Report Type: 
  Country: None (occurrence: None)
  Receive Date: 20090615
  Receipt Date: 20090601
  Transmission Date: 20091009
  Serious: Yes (Other)
  Sender: FDA-Public Use
  Company Number: US-PFIZER INC-2006124781

PATIENT
  Sex: Female

DRUGS (9)
  1. CHANTIX [Suspect]
     Indication: SMOKING CESSATION THERAPY
     Dosage: UNK
     Dates: start: 20061001, end: 20071101
  2. CHANTIX [Suspect]
     Dosage: 0.5 MG, 2X/DAY
     Dates: start: 20090101, end: 20090406
  3. FLOVENT [Concomitant]
  4. ALBUTEROL [Concomitant]
  5. DEXTROAMPHETAMINE [Concomitant]
     Dosage: UNK
     Dates: start: 19990101
  6. CLONAZEPAM [Concomitant]
     Dosage: UNK
  7. OMEPRAZOLE [Concomitant]
     Dosage: UNK
  8. VITAMINS [Concomitant]
     Dosage: UNK
  9. ACETYLSALICYLIC ACID [Concomitant]
     Dosage: UNK

REACTIONS (27)
  - ABNORMAL DREAMS [None]
  - AMNESIA [None]
  - ANXIETY [None]
  - BLOOD PRESSURE DECREASED [None]
  - BRADYPHRENIA [None]
  - CHILLS [None]
  - CONFUSIONAL STATE [None]
  - CONSTIPATION [None]
  - DEPRESSION [None]
  - DRUG INEFFECTIVE [None]
  - DRUG WITHDRAWAL SYNDROME [None]
  - DYSPEPSIA [None]
  - DYSPNOEA [None]
  - FATIGUE [None]
  - FEELING GUILTY [None]
  - FLATULENCE [None]
  - HEAD DISCOMFORT [None]
  - INCORRECT DOSE ADMINISTERED [None]
  - INFLUENZA LIKE ILLNESS [None]
  - LETHARGY [None]
  - MALAISE [None]
  - NERVOUS SYSTEM DISORDER [None]
  - THINKING ABNORMAL [None]
  - THYROID DISORDER [None]
  - TOBACCO USER [None]
  - UNEVALUABLE EVENT [None]
  - WEIGHT INCREASED [None]
